FAERS Safety Report 9466472 (Version 3)
Quarter: 2013Q4

REPORT INFORMATION
  Report Type: Report from Study
  Country: US (occurrence: US)
  Receive Date: 20130820
  Receipt Date: 20131002
  Transmission Date: 20140711
  Serious: Yes (Hospitalization)
  Sender: FDA-Public Use
  Company Number: US-ACTELION-A-NJ2013-81245

PATIENT
  Age: 50 Year
  Sex: Female

DRUGS (11)
  1. TRACLEER [Suspect]
     Indication: PULMONARY ARTERIAL HYPERTENSION
     Dosage: 125 MG, BID
     Route: 048
     Dates: start: 20110311
  2. TRACLEER [Suspect]
     Dosage: UNK
     Route: 048
  3. REMODULIN [Concomitant]
     Dosage: 82 NG/KG, PER MIN
     Route: 042
  4. COUMADIN [Concomitant]
     Dosage: 3 MG, TID
  5. LASIX [Concomitant]
     Dosage: UNK
  6. PERCOCET [Concomitant]
     Dosage: 325MG/5MG TAB, EVERY 6 HOURS
  7. ALBUTEROL [Concomitant]
     Dosage: 2.5 MG, Q6HRS AS NEEDED
  8. BUMETANIDE [Concomitant]
     Dosage: 2 MG, BID
  9. MAG-OX [Concomitant]
     Dosage: 1 TAB DAILY
  10. NYSTATIN [Concomitant]
     Dosage: 1 APPL, TID
  11. KLOR-CON [Concomitant]
     Dosage: 60 MEQ, UNK

REACTIONS (13)
  - Respiratory distress [Unknown]
  - Pneumonia [Recovering/Resolving]
  - Cardiac failure [Recovering/Resolving]
  - Dyspnoea [Recovering/Resolving]
  - Diet noncompliance [Recovering/Resolving]
  - Renal failure acute [Recovering/Resolving]
  - Cellulitis [Recovering/Resolving]
  - Pain in extremity [Recovering/Resolving]
  - Erythema [Recovering/Resolving]
  - Oedema peripheral [Recovering/Resolving]
  - Anaemia [Recovered/Resolved]
  - Lung infiltration [Recovering/Resolving]
  - Clostridium difficile colitis [Unknown]
